FAERS Safety Report 6850553-9 (Version None)
Quarter: 2010Q3

REPORT INFORMATION
  Report Type: 
  Country: None (occurrence: None)
  Receive Date: 20100716
  Receipt Date: 20071017
  Transmission Date: 20110219
  Serious: Yes (Other)
  Sender: FDA-Public Use
  Company Number: US-PFIZER INC-2007088354

PATIENT
  Sex: Female

DRUGS (3)
  1. CHANTIX [Suspect]
     Indication: SMOKING CESSATION THERAPY
     Route: 048
     Dates: start: 20071008
  2. LISINOPRIL [Concomitant]
     Indication: BLOOD PRESSURE ABNORMAL
  3. PAROXETINE [Concomitant]

REACTIONS (5)
  - ABNORMAL DREAMS [None]
  - DIZZINESS [None]
  - NAUSEA [None]
  - SOMNOLENCE [None]
  - VOMITING [None]
